FAERS Safety Report 9514171 (Version 1)
Quarter: 2013Q3

REPORT INFORMATION
  Report Type: Spontaneous
  Country: US (occurrence: US)
  Receive Date: 20130910
  Receipt Date: 20130910
  Transmission Date: 20140515
  Serious: No
  Sender: FDA-Public Use
  Company Number: -SAAVPROD-BMS17075912

PATIENT
  Age: 68 Year
  Sex: Female

DRUGS (2)
  1. AVAPRO [Suspect]
     Dosage: UNK DATE: INCREASED TO 300 MG AND WENT BACK TO SAME, RESTARTED ON 29APR12
  2. COZAAR [Suspect]

REACTIONS (1)
  - Hypertension [Recovering/Resolving]
